FAERS Safety Report 9424540 (Version 1)
Quarter: 2013Q3

REPORT INFORMATION
  Report Type: Spontaneous
  Country: US (occurrence: None)
  Receive Date: 20130725
  Receipt Date: 20130725
  Transmission Date: 20140515
  Serious: Yes (Hospitalization, Other)
  Sender: FDA-Public Use
  Company Number: 54973 AE # 1430

PATIENT
  Age: 8 Month
  Sex: Male

DRUGS (1)
  1. HYLAND^S BABY TEETHING TABLETS [Suspect]
     Indication: TEETHING
     Dosage: AS NEEDED

REACTIONS (4)
  - Convulsion [None]
  - Unresponsive to stimuli [None]
  - Foaming at mouth [None]
  - Cyanosis [None]
